FAERS Safety Report 9819379 (Version 1)
Quarter: 2014Q1

REPORT INFORMATION
  Report Type: Spontaneous
  Country: US (occurrence: US)
  Receive Date: 20140115
  Receipt Date: 20140115
  Transmission Date: 20141002
  Serious: No
  Sender: FDA-Public Use
  Company Number: US-009507513-1401USA005407

PATIENT
  Age: 21 Year
  Sex: Female

DRUGS (1)
  1. NUVARING [Suspect]
     Indication: CONTRACEPTION
     Dosage: 3WEEKS IN, NO BREAK, 3 WEEKS
     Route: 067
     Dates: start: 201310

REACTIONS (3)
  - Haemorrhage [Unknown]
  - Incorrect drug administration duration [Unknown]
  - Off label use [Unknown]
